FAERS Safety Report 8794425 (Version 1)
Quarter: 2012Q4

REPORT INFORMATION
  Report Type: 
  Country: TW (occurrence: TW)
  Receive Date: 20120917
  Receipt Date: 20120917
  Transmission Date: 20130627
  Serious: Yes (Hospitalization, Other)
  Sender: FDA-Public Use
  Company Number: TW-PFIZER INC-2012223817

PATIENT
  Age: 30 Year
  Sex: Female

DRUGS (3)
  1. VENLAFAXINE HYDROCHLORIDE [Suspect]
     Dosage: UNK
  2. LORAZEPAM [Suspect]
     Dosage: UNK
  3. BUPROPION [Suspect]
     Dosage: UNK

REACTIONS (5)
  - Intentional overdose [Unknown]
  - Suicide attempt [Unknown]
  - Central nervous system necrosis [Not Recovered/Not Resolved]
  - Cardiotoxicity [Recovered/Resolved]
  - Withdrawal syndrome [Unknown]
